FAERS Safety Report 15147330 (Version 1)
Quarter: 2018Q3

REPORT INFORMATION
  Report Type: Spontaneous
  Country: US (occurrence: US)
  Receive Date: 20180704
  Receipt Date: 20180704
  Transmission Date: 20181010
  Serious: No
  Sender: FDA-Public Use
  Company Number: None

PATIENT
  Age: 22 Year
  Sex: Male
  Weight: 83.1 kg

DRUGS (1)
  1. AIMOVIG [Suspect]
     Active Substance: ERENUMAB-AOOE
     Indication: MIGRAINE
     Dosage: ?          OTHER FREQUENCY:MONTHLY;?
     Route: 058
     Dates: start: 20180617, end: 20180617

REACTIONS (9)
  - Brain oedema [None]
  - Tonic convulsion [None]
  - Encephalopathy [None]
  - Insomnia [None]
  - Status epilepticus [None]
  - Hepatic failure [None]
  - Pyrexia [None]
  - Blood brain barrier defect [None]
  - International normalised ratio increased [None]

NARRATIVE: CASE EVENT DATE: 20180619
